FAERS Safety Report 13765577 (Version 5)
Quarter: 2018Q4

REPORT INFORMATION
  Report Type: Report from Study
  Country: US (occurrence: US)
  Receive Date: 20170718
  Receipt Date: 20181026
  Transmission Date: 20190204
  Serious: Yes (Hospitalization)
  Sender: FDA-Public Use
  Company Number: US-ACTELION-A-US2017-156683

PATIENT
  Age: 2 Year
  Sex: Female
  Weight: 39.91 kg

DRUGS (13)
  1. TRACLEER [Suspect]
     Active Substance: BOSENTAN
     Dosage: 31.25 MG, BID
     Route: 048
     Dates: start: 201801
  2. SILDENAFIL. [Concomitant]
     Active Substance: SILDENAFIL
     Dosage: 20 MG, TID
     Dates: start: 20180108, end: 20180512
  3. LEVETIRACETAM. [Concomitant]
     Active Substance: LEVETIRACETAM
     Dosage: 350 MG, BID
     Route: 048
     Dates: start: 20180108, end: 20180512
  4. LANSOPRAZOLE. [Concomitant]
     Active Substance: LANSOPRAZOLE
     Dosage: 15 MG, QD
     Route: 048
     Dates: start: 20180108, end: 20180512
  5. TRACLEER [Suspect]
     Active Substance: BOSENTAN
     Dosage: 62.5 1 TABLET DISOLVED IN 12.5 ML WATER 2X DAILY
     Route: 048
  6. VANCOMYCIN [Concomitant]
     Active Substance: VANCOMYCIN
     Dosage: 190 MG, Q6HRS
     Route: 042
     Dates: start: 20180108, end: 20180117
  7. MEROPENEM. [Concomitant]
     Active Substance: MEROPENEM
     Dosage: 520 MG, Q12HRS
     Route: 042
     Dates: start: 20180114, end: 20180119
  8. GENTAMYCIN [Concomitant]
     Active Substance: GENTAMICIN
     Dosage: 38 MG, QD
     Route: 042
     Dates: start: 20180111, end: 20180114
  9. TPN [Concomitant]
     Active Substance: AMINO ACIDS\DEXTROSE\ELECTROLYTES NOS\SOYBEAN OIL
     Dosage: UNK
     Dates: end: 20180114
  10. OCTREOTIDE. [Concomitant]
     Active Substance: OCTREOTIDE
     Dosage: 50 MCG, Q12HRS
     Route: 058
     Dates: start: 20180108, end: 20180113
  11. TRACLEER [Suspect]
     Active Substance: BOSENTAN
     Indication: PULMONARY ARTERIAL HYPERTENSION
     Dosage: 31.25 MG, BID
     Route: 048
     Dates: end: 20180114
  12. LEVOTHYROXINE. [Concomitant]
     Active Substance: LEVOTHYROXINE
     Dosage: 62.5 MCG, UNK
     Dates: start: 20180108, end: 20180512
  13. CEFEPIME [Concomitant]
     Active Substance: CEFEPIME HYDROCHLORIDE
     Dosage: UNK, TID
     Route: 042
     Dates: start: 20180108, end: 20180114

REACTIONS (15)
  - Device related infection [Unknown]
  - Extracorporeal membrane oxygenation [Unknown]
  - Blood bilirubin increased [Recovering/Resolving]
  - Liver function test abnormal [Recovering/Resolving]
  - Pulmonary hypertension [Unknown]
  - Alanine aminotransferase increased [Recovering/Resolving]
  - Off label use [Unknown]
  - Cardiac operation [Unknown]
  - Pyrexia [Unknown]
  - Malabsorption [Unknown]
  - Blood alkaline phosphatase increased [Recovering/Resolving]
  - Aspartate aminotransferase increased [Recovering/Resolving]
  - Device issue [Unknown]
  - Tachycardia [Unknown]
  - Hypoxia [Unknown]

NARRATIVE: CASE EVENT DATE: 20180114
